FAERS Safety Report 8592895-5 (Version None)
Quarter: 2012Q3

REPORT INFORMATION
  Report Type: 
  Country: None (occurrence: None)
  Receive Date: 20120814
  Receipt Date: 20120730
  Transmission Date: 20120928
  Serious: Yes (Other)
  Sender: FDA-Public Use
  Company Number: FR-ROCHE-1074728

PATIENT
  Sex: Female
  Weight: 47 kg

DRUGS (6)
  1. BONIVA [Suspect]
     Indication: OSTEOPOROSIS POSTMENOPAUSAL
     Dates: start: 20110404, end: 20120404
  2. CYMBALTA [Concomitant]
     Dosage: 2 DOSES
  3. RISEDRONATE SODIUM [Concomitant]
  4. OMEPRAZOLE [Concomitant]
  5. OXAZEPAM [Concomitant]
  6. TRAMADOL HCL [Concomitant]

REACTIONS (9)
  - GINGIVAL RECESSION [None]
  - BONE PAIN [None]
  - GINGIVAL BLEEDING [None]
  - GINGIVAL DISORDER [None]
  - ABDOMINAL DISCOMFORT [None]
  - DIPLEGIA [None]
  - LOOSE TOOTH [None]
  - DENTAL CARIES [None]
  - HEADACHE [None]
